FAERS Safety Report 11411491 (Version 2)
Quarter: 2015Q3

REPORT INFORMATION
  Report Type: Spontaneous
  Country: US (occurrence: US)
  Receive Date: 20150821
  Receipt Date: 20150903
  Transmission Date: 20151125
  Serious: No
  Sender: FDA-Public Use
  Company Number: US-ELI_LILLY_AND_COMPANY-US201008002183

PATIENT
  Sex: Male

DRUGS (2)
  1. HUMALOG [Suspect]
     Active Substance: INSULIN LISPRO
     Indication: DIABETES MELLITUS
     Dosage: 5 U, UNK
     Dates: start: 20090805
  2. HUMULIN R [Suspect]
     Active Substance: INSULIN HUMAN
     Dosage: 5 U, UNK

REACTIONS (1)
  - Wrong drug administered [Recovered/Resolved]
